FAERS Safety Report 5518333-4 (Version None)
Quarter: 2007Q4

REPORT INFORMATION
  Report Type: 
  Country: None (occurrence: None)
  Receive Date: 20071113
  Receipt Date: 20071113
  Transmission Date: 20080405
  Serious: Yes (Other)
  Sender: FDA-Public Use
  Company Number: None

PATIENT
  Age: 47 Year
  Sex: Male
  Weight: 74.8435 kg

DRUGS (1)
  1. ZOLPIDEM [Suspect]
     Indication: INSOMNIA
     Dosage: 1 TABLET  BEDTIME  PO
     Route: 048
     Dates: start: 20070828, end: 20070916

REACTIONS (10)
  - ABNORMAL BEHAVIOUR [None]
  - ABNORMAL SLEEP-RELATED EVENT [None]
  - AGGRESSION [None]
  - ALCOHOL ABUSE [None]
  - AMNESIA [None]
  - COORDINATION ABNORMAL [None]
  - DELUSION [None]
  - DISINHIBITION [None]
  - HALLUCINATION [None]
  - PERSONALITY CHANGE [None]
